FAERS Safety Report 5125736-9 (Version None)
Quarter: 2006Q3

REPORT INFORMATION
  Report Type: 
  Country: None (occurrence: None)
  Receive Date: 20060814
  Receipt Date: 20060404
  Transmission Date: 20061208
  Serious: Yes (Other)
  Sender: FDA-Public Use
  Company Number: PHEH2006US04217

PATIENT
  Age: 81 Year
  Sex: Male

DRUGS (2)
  1. VISUDYNE [Suspect]
     Indication: MACULAR DEGENERATION
     Dates: start: 20051122, end: 20051122
  2. VISUDYNE [Suspect]
     Indication: MACULAR DEGENERATION
     Dates: start: 20050812, end: 20050812

REACTIONS (2)
  - DEAFNESS [None]
  - PAIN [None]
